FAERS Safety Report 19406341 (Version 1)
Quarter: 2021Q2

REPORT INFORMATION
  Report Type: Spontaneous
  Country: IT (occurrence: IT)
  Receive Date: 20210611
  Receipt Date: 20210611
  Transmission Date: 20210717
  Serious: Yes (Hospitalization)
  Sender: FDA-Public Use
  Company Number: IT-ASTRAZENECA-2021A495254

PATIENT
  Age: 59 Year
  Sex: Female
  Weight: 60 kg

DRUGS (3)
  1. DEPAKIN [Suspect]
     Active Substance: VALPROATE SODIUM
     Indication: MEDICATION ERROR
     Dosage: 500.0MG ONCE/SINGLE ADMINISTRATION
     Route: 048
     Dates: start: 20210508, end: 20210508
  2. DELORAZEPAM [Suspect]
     Active Substance: DELORAZEPAM
     Indication: MEDICATION ERROR
     Dosage: 0.5MG ONCE/SINGLE ADMINISTRATION
     Route: 048
     Dates: start: 20210508, end: 20210508
  3. SEROQUEL [Suspect]
     Active Substance: QUETIAPINE FUMARATE
     Indication: MEDICATION ERROR
     Dosage: 300.0MG ONCE/SINGLE ADMINISTRATION
     Route: 048
     Dates: start: 20210508, end: 20210508

REACTIONS (3)
  - Sopor [Not Recovered/Not Resolved]
  - Somnolence [Not Recovered/Not Resolved]
  - Medication error [Not Recovered/Not Resolved]

NARRATIVE: CASE EVENT DATE: 20210508
